FAERS Safety Report 15087539 (Version 1)
Quarter: 2018Q2

REPORT INFORMATION
  Report Type: Report from Study
  Country: None (occurrence: CA)
  Receive Date: 20180628
  Receipt Date: 20180628
  Transmission Date: 20180711
  Serious: Yes (Hospitalization, Other)
  Sender: FDA-Public Use
  Company Number: CA-ABBVIE-16K-028-1694573-00

PATIENT
  Age: 63 Year
  Sex: Male

DRUGS (2)
  1. HUMIRA [Suspect]
     Active Substance: ADALIMUMAB
     Route: 058
     Dates: start: 2016
  2. HUMIRA [Suspect]
     Active Substance: ADALIMUMAB
     Indication: RHEUMATOID ARTHRITIS
     Route: 058
     Dates: start: 20040621, end: 2016

REACTIONS (10)
  - Glucose tolerance impaired [Unknown]
  - Rheumatoid arthritis [Not Recovered/Not Resolved]
  - Pulmonary mass [Unknown]
  - Haematoma [Recovered/Resolved]
  - Chronic obstructive pulmonary disease [Unknown]
  - Rheumatoid arthritis [Recovered/Resolved]
  - Myocardial infarction [Recovered/Resolved]
  - Humidity intolerance [Unknown]
  - Pain in extremity [Recovering/Resolving]
  - Haematoma [Not Recovered/Not Resolved]

NARRATIVE: CASE EVENT DATE: 2016
